FAERS Safety Report 16554084 (Version 1)
Quarter: 2019Q3

REPORT INFORMATION
  Report Type: Spontaneous
  Country: US (occurrence: US)
  Receive Date: 20190529
  Receipt Date: 20190529
  Transmission Date: 20191004
  Serious: Yes (Death)
  Sender: FDA-Public Use
  Company Number: None

PATIENT
  Age: 85 Year
  Sex: Female
  Weight: 58.97 kg

DRUGS (2)
  1. MORPHINE [Suspect]
     Active Substance: MORPHINE
  2. ATIVAN [Suspect]
     Active Substance: LORAZEPAM

REACTIONS (4)
  - Oxygen saturation decreased [None]
  - Blood pressure decreased [None]
  - Heart rate decreased [None]
  - Euthanasia [None]

NARRATIVE: CASE EVENT DATE: 20190405
